FAERS Safety Report 8344504-8 (Version None)
Quarter: 2012Q2

REPORT INFORMATION
  Report Type: 
  Country: None (occurrence: None)
  Receive Date: 20120508
  Receipt Date: 20120430
  Transmission Date: 20120825
  Serious: Yes (Hospitalization)
  Sender: FDA-Public Use
  Company Number: PHHO2012DE006881

PATIENT
  Sex: Female
  Weight: 50 kg

DRUGS (4)
  1. TASIGNA [Suspect]
     Indication: CHRONIC MYELOID LEUKAEMIA
     Dosage: UNK
     Dates: start: 20101213
  2. LEVOTHYROXINE SODIUM [Concomitant]
     Indication: HYPOTHYROIDISM
     Dosage: UNK
     Dates: start: 20100923
  3. IMATINIB MESYLATE [Suspect]
     Dosage: 400 MG, UNK
     Route: 048
     Dates: start: 20090327
  4. AMIODARONE HCL [Concomitant]
     Indication: ARRHYTHMIA
     Dosage: 200

REACTIONS (1)
  - STRESS CARDIOMYOPATHY [None]
